FAERS Safety Report 6533791-4 (Version None)
Quarter: 2010Q1

REPORT INFORMATION
  Report Type: 
  Country: None (occurrence: None)
  Receive Date: 20100111
  Receipt Date: 20090715
  Transmission Date: 20100710
  Serious: No
  Sender: FDA-Public Use
  Company Number: US-ABBOTT-09P-163-0585798-00

PATIENT
  Sex: Male
  Weight: 99.88 kg

DRUGS (3)
  1. ACETAMINOPHEN AND HYDROCODONE BITARTRATE [Suspect]
     Indication: DRUG USE FOR UNKNOWN INDICATION
  2. CHEWABLE CHILDREN'S ASPIRIN [Concomitant]
     Indication: FLUSHING
     Dosage: PATIENT WAS NOT SURE OF DOSE.
  3. UNKNOWN ALLERGY MEDICATION [Concomitant]
     Indication: HOUSE DUST ALLERGY

REACTIONS (3)
  - FATIGUE [None]
  - HALLUCINATION [None]
  - IRRITABILITY [None]
